FAERS Safety Report 17315548 (Version 1)
Quarter: 2020Q1

REPORT INFORMATION
  Report Type: Report from Study
  Country: GB (occurrence: GB)
  Receive Date: 20200124
  Receipt Date: 20200124
  Transmission Date: 20200409
  Serious: Yes (Hospitalization)
  Sender: FDA-Public Use
  Company Number: GB-JNJFOC-20200125028

PATIENT

DRUGS (2)
  1. STELARA [Suspect]
     Active Substance: USTEKINUMAB
     Indication: CROHN^S DISEASE
     Route: 058
     Dates: start: 20170830, end: 201904
  2. SALBUTAMOL [Concomitant]
     Active Substance: ALBUTEROL
     Dosage: PRN INHALATION
     Route: 065

REACTIONS (3)
  - Peritonitis [Not Recovered/Not Resolved]
  - Functional gastrointestinal disorder [Unknown]
  - Crohn^s disease [Unknown]

NARRATIVE: CASE EVENT DATE: 20190411
